FAERS Safety Report 4468293-2 (Version None)
Quarter: 2004Q4

REPORT INFORMATION
  Report Type: 
  Country: None (occurrence: None)
  Receive Date: 20041004
  Receipt Date: 20040924
  Transmission Date: 20050328
  Serious: Yes (Other)
  Sender: FDA-Public Use
  Company Number: 2004230270JP

PATIENT
  Age: 58 Year
  Sex: Male
  Weight: 68 kg

DRUGS (6)
  1. HALCION [Suspect]
     Indication: INSOMNIA
     Dosage: 1 MG, QD, ORAL
     Route: 048
  2. ZOLPIDEM TARTRATE [Suspect]
     Indication: INSOMNIA
     Dosage: 10 MG, QD, ORAL
     Route: 048
  3. BROTIZOLAM(BROTIZOLAM) [Suspect]
     Indication: INSOMNIA
     Dosage: 0.5 MG, QID, ORAL
     Route: 048
  4. AMOBAN(ZOPICLONE) [Suspect]
     Indication: INSOMNIA
     Dosage: 1 MG, QD, ORAL
     Route: 048
  5. LOXONIN (LOXOPROFEN SODIUM) [Concomitant]
  6. SELBEX (TEPRENONE) [Concomitant]

REACTIONS (10)
  - ABNORMAL BEHAVIOUR [None]
  - BRAIN CONTUSION [None]
  - CONVULSION [None]
  - DRUG DEPENDENCE [None]
  - DRUG WITHDRAWAL SYNDROME [None]
  - POST PROCEDURAL COMPLICATION [None]
  - ROAD TRAFFIC ACCIDENT [None]
  - TEMPORAL LOBE EPILEPSY [None]
  - TIBIA FRACTURE [None]
  - TRAUMATIC BRAIN INJURY [None]
